FAERS Safety Report 14209638 (Version 2)
Quarter: 2017Q4

REPORT INFORMATION
  Report Type: Spontaneous
  Country: US (occurrence: US)
  Receive Date: 20171121
  Receipt Date: 20171214
  Transmission Date: 20180321
  Serious: No
  Sender: FDA-Public Use
  Company Number: US-PFIZER INC-2017495152

PATIENT
  Age: 72 Year
  Sex: Female

DRUGS (1)
  1. IBRANCE [Suspect]
     Active Substance: PALBOCICLIB
     Indication: BREAST CANCER FEMALE
     Dosage: 75 MG, DAILY (QD FOR 21 DAYS)
     Route: 048
     Dates: start: 20170715

REACTIONS (5)
  - Decreased appetite [Unknown]
  - Alopecia [Unknown]
  - Tremor [Unknown]
  - Nausea [Unknown]
  - Stomatitis [Unknown]

NARRATIVE: CASE EVENT DATE: 2017
